FAERS Safety Report 23743805 (Version 5)
Quarter: 2025Q1

REPORT INFORMATION
  Report Type: Report from Study
  Country: US (occurrence: US)
  Receive Date: 20240415
  Receipt Date: 20250306
  Transmission Date: 20250409
  Serious: Yes (Hospitalization, Other)
  Sender: TAKEDA
  Company Number: US-TAKEDA-2023TUS079624

PATIENT
  Sex: Female

DRUGS (16)
  1. PONATINIB [Suspect]
     Active Substance: PONATINIB
     Indication: Acute lymphocytic leukaemia
     Dosage: 30 MILLIGRAM, QD
  2. PONATINIB [Suspect]
     Active Substance: PONATINIB
     Dosage: 30 MILLIGRAM, QD
  3. PONATINIB [Suspect]
     Active Substance: PONATINIB
     Dosage: 30 MILLIGRAM, QD
  4. PONATINIB [Suspect]
     Active Substance: PONATINIB
     Dosage: 15 MILLIGRAM, QD
  5. PONATINIB [Suspect]
     Active Substance: PONATINIB
     Dosage: 15 MILLIGRAM, QD
  6. PONATINIB [Suspect]
     Active Substance: PONATINIB
     Dosage: 15 MILLIGRAM, QD
  7. CYTARABINE [Concomitant]
     Active Substance: CYTARABINE
  8. DEXAMETHASONE [Concomitant]
     Active Substance: DEXAMETHASONE
  9. KEPPRA [Concomitant]
     Active Substance: LEVETIRACETAM
  10. BUSPIRONE HCL [Concomitant]
     Active Substance: BUSPIRONE HYDROCHLORIDE
  11. LEXAPRO [Concomitant]
     Active Substance: ESCITALOPRAM OXALATE
  12. BLINCYTO [Concomitant]
     Active Substance: BLINATUMOMAB
  13. METHOTREXATE [Concomitant]
     Active Substance: METHOTREXATE
  14. ASPIRIN [Concomitant]
     Active Substance: ASPIRIN
  15. COLACE [Concomitant]
     Active Substance: DOCUSATE SODIUM
  16. ACYCLOVIR [Concomitant]
     Active Substance: ACYCLOVIR

REACTIONS (10)
  - Gastrointestinal infection [Unknown]
  - Vomiting [Unknown]
  - Chest pain [Unknown]
  - Pneumonia [Unknown]
  - Memory impairment [Unknown]
  - Product dose omission issue [Unknown]
  - Off label use [Unknown]
  - Uterine leiomyoma [Unknown]
  - Stomatitis [Recovered/Resolved]
  - Constipation [Recovered/Resolved]
